FAERS Safety Report 4804635-3 (Version None)
Quarter: 2005Q4

REPORT INFORMATION
  Report Type: 
  Country: None (occurrence: None)
  Receive Date: 20051017
  Receipt Date: 20051004
  Transmission Date: 20060501
  Serious: Yes (Hospitalization, Other)
  Sender: FDA-Public Use
  Company Number: 2005129818

PATIENT
  Age: 80 Year
  Sex: Female
  Weight: 52 kg

DRUGS (10)
  1. ZOLOFT [Suspect]
     Indication: DEPRESSION
     Dosage: 1 TABLET (50 MG, 1 IN 1 D)
     Dates: start: 20050828, end: 20050912
  2. AMLOR (AMLODIPINE0 [Concomitant]
  3. PIRETANIDE (PIRETANIDE) [Concomitant]
  4. RAMIPRIL [Concomitant]
  5. URAPIDIL (URAPIDIL) [Concomitant]
  6. ACETYLSALICYLATE LYSINE (ACETYLSALICYLATE LYSINE) [Concomitant]
  7. ALPRAZOLAM [Concomitant]
  8. ACEPROMAZINE (ACEPROMAZINE) [Concomitant]
  9. RISEDRONIC ACID (RISEDRONIC ACID) [Concomitant]
  10. CODEINE PHOSPHATE (CODEINE PHOSPHATE) [Concomitant]

REACTIONS (2)
  - CEREBRAL ATROPHY [None]
  - HALLUCINATIONS, MIXED [None]
